FAERS Safety Report 15634248 (Version 1)
Quarter: 2018Q4

REPORT INFORMATION
  Report Type: Spontaneous
  Country: ES (occurrence: ES)
  Receive Date: 20181119
  Receipt Date: 20181119
  Transmission Date: 20190205
  Serious: Yes (Hospitalization)
  Sender: FDA-Public Use
  Company Number: ES-TEVA-2018-ES-975646

PATIENT
  Age: 87 Year
  Sex: Male
  Weight: 65 kg

DRUGS (5)
  1. ENALAPRIL 10 MG 60 COMPRIMIDOS [Concomitant]
     Indication: HYPERTENSION
     Dates: start: 2018
  2. ESOMEPRAZOL 40 MG 56 C?PSULAS [Concomitant]
     Active Substance: ESOMEPRAZOLE
     Dosage: 40 MILLIGRAM DAILY;
     Route: 048
     Dates: start: 20170605
  3. PARACETAMOL (12A) [Concomitant]
     Active Substance: ACETAMINOPHEN
     Indication: ANALGESIC THERAPY
  4. CIPROFLOXACINO 500 MG 14 COMPRIMIDOS [Suspect]
     Active Substance: CIPROFLOXACIN
     Indication: URINARY TRACT INFECTION
     Route: 048
     Dates: start: 20181007, end: 20181008
  5. NAPROXENO 500 MG 40 COMPRIMIDOS [Concomitant]
     Indication: OSTEOARTHRITIS
     Dosage: 50 MILLIGRAM DAILY;
     Route: 048
     Dates: start: 2018

REACTIONS (4)
  - Disorientation [Recovering/Resolving]
  - Cellulitis [Recovering/Resolving]
  - Confusional state [Recovering/Resolving]
  - Hallucination [Recovering/Resolving]

NARRATIVE: CASE EVENT DATE: 20181008
